FAERS Safety Report 6404595-8 (Version None)
Quarter: 2009Q4

REPORT INFORMATION
  Report Type: 
  Country: None (occurrence: None)
  Receive Date: 20091016
  Receipt Date: 20091007
  Transmission Date: 20100525
  Serious: Yes (Hospitalization)
  Sender: FDA-Public Use
  Company Number: DE-ASTRAZENECA-2009SE05424

PATIENT
  Age: 29196 Day
  Sex: Male
  Weight: 80 kg

DRUGS (3)
  1. ZOLADEX [Suspect]
     Indication: PROSTATE CANCER
     Route: 058
     Dates: start: 20090105
  2. ZOLADEX [Suspect]
     Route: 058
     Dates: start: 20090415
  3. ANTIHYPERTENSIVES [Concomitant]

REACTIONS (1)
  - HYPERTENSIVE CRISIS [None]
